FAERS Safety Report 15286871 (Version 1)
Quarter: 2018Q3

REPORT INFORMATION
  Report Type: Spontaneous
  Country: US (occurrence: US)
  Receive Date: 20180816
  Receipt Date: 20180816
  Transmission Date: 20181010
  Serious: Yes (Hospitalization, Other)
  Sender: FDA-Public Use
  Company Number: US-GLAXOSMITHKLINE-US2018144743

PATIENT
  Age: 88 Year
  Sex: Female

DRUGS (2)
  1. ADVAIR DISKUS [Suspect]
     Active Substance: FLUTICASONE PROPIONATE\SALMETEROL XINAFOATE
     Indication: ASTHMA
     Dosage: 1 PUFF(S), BID
     Route: 055
  2. CALCIUM [Concomitant]
     Active Substance: CALCIUM

REACTIONS (6)
  - Drug ineffective [Unknown]
  - Impaired healing [Recovered/Resolved]
  - Asthma [Unknown]
  - Internal fixation of fracture [Unknown]
  - Ankle fracture [Unknown]
  - Ankle operation [Unknown]

NARRATIVE: CASE EVENT DATE: 20171119
